FAERS Safety Report 7850777-8 (Version None)
Quarter: 2011Q4

REPORT INFORMATION
  Report Type: 
  Country: None (occurrence: None)
  Receive Date: 20111021
  Receipt Date: 20111007
  Transmission Date: 20120403
  Serious: Yes (Other)
  Sender: FDA-Public Use
  Company Number: 2011AP001504

PATIENT
  Age: 61 Year
  Sex: Female

DRUGS (13)
  1. RAMIPRIL [Suspect]
     Indication: BLOOD PRESSURE
     Dosage: 0.75 MG ; 2.5 MG
     Dates: start: 20101206, end: 20101216
  2. RAMIPRIL [Suspect]
     Indication: BLOOD PRESSURE
     Dosage: 0.75 MG ; 2.5 MG
     Dates: start: 20101118
  3. ASPIRIN [Concomitant]
  4. SIMVASTATIN [Concomitant]
  5. BISOPROLOL FUMARATE [Suspect]
     Indication: PRODUCT USED FOR UNKNOWN INDICATION
     Dates: start: 20101001, end: 20101006
  6. BENDROFLUMETHIAZIDE (BENDROFLUMETHIAZIDE) [Concomitant]
  7. INDAPAMIDE [Concomitant]
  8. LOSARTAN POTASSIUM [Concomitant]
  9. TARAXACUM OFFICINALE (TARAXACUM OFFICINALE) [Concomitant]
  10. SOTALOL HCL [Concomitant]
  11. DILTIAZEM [Suspect]
     Indication: PRODUCT USED FOR UNKNOWN INDICATION
     Dosage: 200 MG;PO;QD
     Route: 048
     Dates: start: 20101006, end: 20101104
  12. DILTIAZEM HYDROCHLORIDE [Suspect]
     Dosage: PO
     Route: 048
     Dates: start: 20101006, end: 20101104
  13. MEBEVERINE (MEBEVERINE) [Concomitant]

REACTIONS (9)
  - VISUAL IMPAIRMENT [None]
  - DIZZINESS [None]
  - NAUSEA [None]
  - BLOOD PRESSURE INCREASED [None]
  - HYPOAESTHESIA [None]
  - VISION BLURRED [None]
  - DRUG INTOLERANCE [None]
  - VERTIGO [None]
  - REACTION TO DRUG EXCIPIENTS [None]
